FAERS Safety Report 9507614 (Version 1)
Quarter: 2013Q3

REPORT INFORMATION
  Report Type: Spontaneous
  Country: FR (occurrence: None)
  Receive Date: 20130905
  Receipt Date: 20130905
  Transmission Date: 20140515
  Serious: Yes (Other)
  Sender: FDA-Public Use
  Company Number: 1874636

PATIENT
  Age: 81 Year
  Sex: Male

DRUGS (5)
  1. VINCRISTINE SULFATE [Suspect]
     Indication: PRIMARY MEDIASTINAL LARGE B-CELL LYMPHOMA STAGE IV
     Dosage: 2 MG MILLIGRAM (S), CYCLICAL, INTRAVENOUS
     Dates: start: 20130805, end: 20130805
  2. METHOTREXATE [Suspect]
     Indication: PRIMARY MEDIASTINAL LARGE B-CELL LYMPHOMA STAGE IV
     Route: 042
     Dates: start: 20130805, end: 20130805
  3. RITUXIMAB [Concomitant]
  4. METHYLPREDNISOLONE [Concomitant]
  5. PROCARBAZINE [Concomitant]

REACTIONS (2)
  - Renal failure acute [None]
  - Pyrexia [None]
